FAERS Safety Report 9766401 (Version 1)
Quarter: 2013Q4

REPORT INFORMATION
  Report Type: Spontaneous
  Country: US (occurrence: US)
  Receive Date: 20131217
  Receipt Date: 20131217
  Transmission Date: 20140711
  Serious: No
  Sender: FDA-Public Use
  Company Number: US-GLAXOSMITHKLINE-A1027147A

PATIENT
  Age: 66 Year
  Sex: Male

DRUGS (10)
  1. VOTRIENT [Suspect]
     Indication: RENAL CANCER
     Dosage: 800MG PER DAY
     Route: 048
     Dates: start: 20130308
  2. MOEXIPRIL [Concomitant]
  3. GLIMEPIRIDE [Concomitant]
  4. PLAVIX [Concomitant]
  5. METOPROLOL [Concomitant]
  6. RANEXA [Concomitant]
  7. JANUMET [Concomitant]
  8. FLOMAX [Concomitant]
  9. MULTIVITAMIN [Concomitant]
  10. COLACE [Concomitant]

REACTIONS (4)
  - Diarrhoea [Unknown]
  - Eructation [Unknown]
  - Flatulence [Unknown]
  - Dysgeusia [Unknown]
